FAERS Safety Report 14895633 (Version 1)
Quarter: 2018Q2

REPORT INFORMATION
  Report Type: Spontaneous
  Country: GB (occurrence: GB)
  Receive Date: 20180515
  Receipt Date: 20180515
  Transmission Date: 20180711
  Serious: Yes (Other)
  Sender: FDA-Public Use
  Company Number: GB-ASTRAZENECA-2018SE61984

PATIENT
  Age: 30 Year
  Sex: Female
  Weight: 90 kg

DRUGS (9)
  1. QUETIAPINE. [Suspect]
     Active Substance: QUETIAPINE
     Indication: DEPRESSION SUICIDAL
     Dosage: 200.0MG UNKNOWN
     Route: 048
     Dates: start: 20180418
  2. NAPROXEN SODIUM. [Concomitant]
     Active Substance: NAPROXEN SODIUM
  3. QUETIAPINE. [Suspect]
     Active Substance: QUETIAPINE
     Indication: DEPRESSION SUICIDAL
     Dosage: 75.0MG UNKNOWN
     Route: 048
  4. ALVERINE CITRATE [Concomitant]
     Active Substance: ALVERINE CITRATE
  5. COLECALCIFEROL [Concomitant]
     Active Substance: CHOLECALCIFEROL
  6. FERROUS FUMARATE [Concomitant]
     Active Substance: FERROUS FUMARATE
  7. OMEPRAZOLE. [Concomitant]
     Active Substance: OMEPRAZOLE
  8. PREGABALIN. [Concomitant]
     Active Substance: PREGABALIN
  9. VENLAFAXINE [Concomitant]
     Active Substance: VENLAFAXINE HYDROCHLORIDE

REACTIONS (10)
  - Alopecia [Unknown]
  - Tremor [Unknown]
  - Fatigue [Unknown]
  - Dizziness [Not Recovered/Not Resolved]
  - Abnormal weight gain [Unknown]
  - Dry eye [Unknown]
  - Paraesthesia [Unknown]
  - Dry mouth [Unknown]
  - Tachycardia [Unknown]
  - Inadequate analgesia [Unknown]

NARRATIVE: CASE EVENT DATE: 20180419
